FAERS Safety Report 13801717 (Version 2)
Quarter: 2017Q4

REPORT INFORMATION
  Report Type: Spontaneous
  Country: JP (occurrence: JP)
  Receive Date: 20170727
  Receipt Date: 20171023
  Transmission Date: 20180320
  Serious: Yes (Hospitalization, Other)
  Sender: FDA-Public Use
  Company Number: JP-GLAXOSMITHKLINE-JP2017JPN114184

PATIENT
  Age: 10 Year

DRUGS (1)
  1. RELENZA [Suspect]
     Active Substance: ZANAMIVIR
     Indication: INFLUENZA
     Dosage: UNK
     Route: 055

REACTIONS (3)
  - Speech disorder [Recovered/Resolved]
  - Encephalopathy [Recovered/Resolved]
  - Central nervous system lesion [Recovered/Resolved]
